FAERS Safety Report 21518191 (Version 2)
Quarter: 2022Q4

REPORT INFORMATION
  Report Type: Spontaneous
  Country: IR (occurrence: IR)
  Receive Date: 20221028
  Receipt Date: 20221114
  Transmission Date: 20230113
  Serious: Yes (Hospitalization, Other)
  Sender: FDA-Public Use
  Company Number: IR-Accord-283740

PATIENT
  Age: 70 Year
  Sex: Male

DRUGS (2)
  1. HYDROXYCHLOROQUINE [Suspect]
     Active Substance: HYDROXYCHLOROQUINE
     Indication: COVID-19 pneumonia
     Dosage: 800 MG HCQ ON DAY ONE, THEN, 200 MG TWICE A DAY FOR FOUR DAYS
  2. OXYGEN [Concomitant]
     Active Substance: OXYGEN
     Indication: COVID-19 pneumonia
     Route: 045

REACTIONS (2)
  - Haemolytic anaemia [Recovered/Resolved]
  - Blood creatinine increased [Recovered/Resolved]
